FAERS Safety Report 21144097 (Version 2)
Quarter: 2022Q3

REPORT INFORMATION
  Report Type: Report from Study
  Country: US (occurrence: None)
  Receive Date: 20220728
  Receipt Date: 20220923
  Transmission Date: 20221026
  Serious: Yes (Hospitalization)
  Sender: FDA-Public Use
  Company Number: US-Eisai Medical Research-EC-2022-111876

PATIENT
  Age: 56 Year
  Sex: Female

DRUGS (5)
  1. LENVIMA [Suspect]
     Active Substance: LENVATINIB
     Indication: Renal cancer
     Route: 048
     Dates: start: 20220215, end: 2022
  2. LENVIMA [Suspect]
     Active Substance: LENVATINIB
     Route: 048
     Dates: start: 20220625, end: 20220830
  3. NEXIUM [Concomitant]
     Active Substance: ESOMEPRAZOLE MAGNESIUM
  4. PREDNISONE [Concomitant]
     Active Substance: PREDNISONE
  5. EVEROLIMUS [Concomitant]
     Active Substance: EVEROLIMUS

REACTIONS (6)
  - Gastric ulcer [Recovering/Resolving]
  - Chemical peritonitis [Recovering/Resolving]
  - Anaemia [Recovering/Resolving]
  - Incorrect dose administered [Unknown]
  - Hypertension [Recovered/Resolved]
  - Dehydration [Unknown]

NARRATIVE: CASE EVENT DATE: 20220101
